FAERS Safety Report 25863517 (Version 1)
Quarter: 2025Q3

REPORT INFORMATION
  Report Type: Spontaneous
  Country: JP (occurrence: JP)
  Receive Date: 20250930
  Receipt Date: 20250930
  Transmission Date: 20251021
  Serious: Yes (Hospitalization, Disabling)
  Sender: JOHNSON AND JOHNSON
  Company Number: JP-JNJFOC-20250947085

PATIENT
  Age: 36 Year
  Sex: Female
  Weight: 47 kg

DRUGS (6)
  1. RISPERDAL [Suspect]
     Active Substance: RISPERIDONE
     Indication: Schizophrenia
     Route: 048
     Dates: end: 20250811
  2. RISPERDAL [Suspect]
     Active Substance: RISPERIDONE
     Dosage: 740-780 MG
     Route: 048
     Dates: start: 20250812, end: 20250812
  3. RISPERDAL [Suspect]
     Active Substance: RISPERIDONE
     Route: 048
     Dates: start: 20250820
  4. LUNESTA [Concomitant]
     Active Substance: ESZOPICLONE
     Indication: Product used for unknown indication
     Route: 048
     Dates: end: 20250812
  5. ESTAZOLAM [Concomitant]
     Active Substance: ESTAZOLAM
     Indication: Product used for unknown indication
     Route: 048
     Dates: end: 20250812
  6. PARLODEL [Concomitant]
     Active Substance: BROMOCRIPTINE MESYLATE
     Indication: Product used for unknown indication
     Route: 048
     Dates: end: 20250812

REACTIONS (8)
  - Abdominal injury [Unknown]
  - Overdose [Unknown]
  - Ventricular tachycardia [Recovering/Resolving]
  - Electrocardiogram QT prolonged [Recovering/Resolving]
  - Tachycardia [Recovering/Resolving]
  - Tachypnoea [Unknown]
  - Blood pressure decreased [Unknown]
  - Bradycardia [Recovering/Resolving]

NARRATIVE: CASE EVENT DATE: 20250812
